FAERS Safety Report 25441983 (Version 1)
Quarter: 2025Q2

REPORT INFORMATION
  Report Type: Spontaneous
  Country: CN (occurrence: CN)
  Receive Date: 20250616
  Receipt Date: 20250616
  Transmission Date: 20250717
  Serious: Yes (Other)
  Sender: NOVARTIS
  Company Number: CN-002147023-NVSC2025CN095196

PATIENT
  Age: 49 Year
  Sex: Female

DRUGS (7)
  1. IMATINIB MESYLATE [Interacting]
     Active Substance: IMATINIB MESYLATE
     Indication: Chronic myeloid leukaemia
     Dosage: 0.4 MG, QD
     Route: 048
  2. BEDAQUILINE [Interacting]
     Active Substance: BEDAQUILINE
     Indication: Pulmonary tuberculosis
     Route: 065
  3. CYCLOSERINE [Concomitant]
     Active Substance: CYCLOSERINE
     Indication: Pulmonary tuberculosis
     Route: 065
  4. CHLORPROMAZINE [Concomitant]
     Active Substance: CHLORPROMAZINE
     Indication: Pulmonary tuberculosis
     Route: 065
  5. PYRAZINAMIDE [Concomitant]
     Active Substance: PYRAZINAMIDE
     Indication: Pulmonary tuberculosis
     Route: 065
  6. CAFFEIC ACID [Concomitant]
     Active Substance: CAFFEIC ACID
     Indication: White blood cell count decreased
     Dosage: 3 DOSAGE FORM, TID
     Route: 048
  7. CAFFEIC ACID [Concomitant]
     Active Substance: CAFFEIC ACID
     Indication: Platelet count decreased

REACTIONS (2)
  - Electrocardiogram QT prolonged [Recovered/Resolved]
  - Drug interaction [Unknown]
